FAERS Safety Report 23340615 (Version 1)
Quarter: 2023Q4

REPORT INFORMATION
  Report Type: Spontaneous
  Country: US (occurrence: US)
  Receive Date: 20231227
  Receipt Date: 20231227
  Transmission Date: 20240110
  Serious: Yes (Other)
  Sender: FDA-Public Use
  Company Number: US-NOVOPROD-1154256

PATIENT
  Sex: Female

DRUGS (1)
  1. NOVOLIN N [Suspect]
     Active Substance: INSULIN HUMAN
     Indication: Product used for unknown indication
     Dosage: 40 IU, QD (30 UNITS IN THE AM AND 10 UNITS AT NIGHT)
     Route: 058

REACTIONS (3)
  - Blood glucose increased [Unknown]
  - Device failure [Unknown]
  - Treatment noncompliance [Unknown]
